FAERS Safety Report 8600612-5 (Version None)
Quarter: 2012Q3

REPORT INFORMATION
  Report Type: 
  Country: None (occurrence: None)
  Receive Date: 20120803
  Receipt Date: 20120727
  Transmission Date: 20120928
  Serious: Yes (Other)
  Sender: FDA-Public Use
  Company Number: GER/UKI/12/0025217

PATIENT
  Age: 66 Year
  Sex: Male
  Weight: 72 kg

DRUGS (1)
  1. CLOPIDOGREL [Suspect]
     Indication: ANGIOPLASTY
     Dosage: 40 MG ORAL
     Route: 048
     Dates: start: 20120613, end: 20120713

REACTIONS (1)
  - SKIN EXFOLIATION [None]
